FAERS Safety Report 5909356-1 (Version None)
Quarter: 2008Q4

REPORT INFORMATION
  Report Type: 
  Country: None (occurrence: None)
  Receive Date: 20081002
  Receipt Date: 20080918
  Transmission Date: 20090506
  Serious: Yes (Hospitalization)
  Sender: FDA-Public Use
  Company Number: GB-DEXPHARM-20081085

PATIENT
  Age: 41 Year
  Sex: Male

DRUGS (3)
  1. OMEPRAZOLE [Suspect]
     Indication: DYSPEPSIA
     Dosage: ^2/1 DAYS^ { 40 MG MILLGRAM(S) } , ORAL
     Route: 048
     Dates: end: 20080815
  2. VORICONAZOLE [Suspect]
     Indication: GASTROINTESTINAL CANDIDIASIS
     Dosage: ^2/1 DAYS^ { 200 MG ORAL  MILLGRAM(S) } ORAL
     Route: 048
     Dates: start: 20040820, end: 20040915
  3. DOMPERIDONE [Concomitant]

REACTIONS (7)
  - COLLAPSE OF LUNG [None]
  - DRUG INTERACTION [None]
  - DRUG LEVEL INCREASED [None]
  - LEFT VENTRICULAR FAILURE [None]
  - NEUTROPENIA [None]
  - PERICARDIAL EFFUSION [None]
  - SUPRAVENTRICULAR TACHYCARDIA [None]
